FAERS Safety Report 16446778 (Version 4)
Quarter: 2021Q1

REPORT INFORMATION
  Report Type: Spontaneous
  Country: US (occurrence: US)
  Receive Date: 20190618
  Receipt Date: 20210222
  Transmission Date: 20210419
  Serious: Yes (Other)
  Sender: FDA-Public Use
  Company Number: US-PFIZER INC-2019189089

PATIENT
  Age: 77 Year
  Sex: Female
  Weight: 68.04 kg

DRUGS (4)
  1. ESTRING [Suspect]
     Active Substance: ESTRADIOL
     Indication: ATROPHIC VULVOVAGINITIS
  2. ESTRING [Suspect]
     Active Substance: ESTRADIOL
     Indication: ATROPHIC VULVOVAGINITIS
     Dosage: 2 MG, (INSERT 1 RING VAGINALLY EVERY 90 DAYS. PROVIDER TO INSERT/REMOVE RINGS.)
     Route: 067
  3. ESTRING [Suspect]
     Active Substance: ESTRADIOL
     Indication: VAGINAL PROLAPSE
     Dosage: 2 MG (1 RING, FOR ABOUT 5 MONTHS)
     Route: 067
     Dates: start: 20170816
  4. ESTRING [Suspect]
     Active Substance: ESTRADIOL
     Indication: URETHRAL CARUNCLE

REACTIONS (2)
  - Intentional product misuse [Unknown]
  - Dementia [Unknown]

NARRATIVE: CASE EVENT DATE: 20170816
